FAERS Safety Report 12365684 (Version 1)
Quarter: 2016Q2

REPORT INFORMATION
  Report Type: Spontaneous
  Country: US (occurrence: US)
  Receive Date: 20160513
  Receipt Date: 20160513
  Transmission Date: 20160815
  Serious: Yes (Hospitalization, Other)
  Sender: FDA-Public Use
  Company Number: US-GLAXOSMITHKLINE-US2016065435

PATIENT
  Sex: Female

DRUGS (21)
  1. SPIRIVA [Concomitant]
     Active Substance: TIOTROPIUM BROMIDE MONOHYDRATE
  2. VITAMIN D3 [Concomitant]
     Active Substance: CHOLECALCIFEROL
  3. ALBUTEROL. [Concomitant]
     Active Substance: ALBUTEROL
  4. CALCIUM [Concomitant]
     Active Substance: CALCIUM
  5. EPIPEN [Concomitant]
     Active Substance: EPINEPHRINE
  6. ALLEGRA [Concomitant]
     Active Substance: FEXOFENADINE HYDROCHLORIDE
  7. PLAVIX [Concomitant]
     Active Substance: CLOPIDOGREL BISULFATE
  8. IPRATROPIUM [Concomitant]
     Active Substance: IPRATROPIUM
  9. ATORVASTATIN [Concomitant]
     Active Substance: ATORVASTATIN
  10. PRO-AIR (ALBUTEROL SULFATE) [Concomitant]
  11. ADVAIR DISKUS [Suspect]
     Active Substance: FLUTICASONE PROPIONATE\SALMETEROL XINAFOATE
     Dosage: 1 PUFF(S), BID
     Route: 055
     Dates: start: 2010, end: 2011
  12. FLUOCINONIDE. [Concomitant]
     Active Substance: FLUOCINONIDE
  13. RESTASIS [Concomitant]
     Active Substance: CYCLOSPORINE
  14. ADVAIR DISKUS [Suspect]
     Active Substance: FLUTICASONE PROPIONATE\SALMETEROL XINAFOATE
     Dosage: 1 PUFF(S), QID
     Route: 055
     Dates: start: 2008, end: 2010
  15. ADVAIR DISKUS [Suspect]
     Active Substance: FLUTICASONE PROPIONATE\SALMETEROL XINAFOATE
     Dosage: 1 PUFF(S), BID
     Route: 055
     Dates: start: 2011, end: 20160426
  16. CLONAZEPAM. [Concomitant]
     Active Substance: CLONAZEPAM
  17. XOLAIR [Concomitant]
     Active Substance: OMALIZUMAB
  18. ADVAIR DISKUS [Suspect]
     Active Substance: FLUTICASONE PROPIONATE\SALMETEROL XINAFOATE
     Indication: ASTHMA
     Dosage: 1 PUFF(S), BID
     Route: 055
     Dates: start: 2001, end: 2008
  19. LEVOTHYROXINE. [Concomitant]
     Active Substance: LEVOTHYROXINE
  20. PANTOPRAZOLE [Concomitant]
     Active Substance: PANTOPRAZOLE SODIUM
  21. SINGULAIR [Concomitant]
     Active Substance: MONTELUKAST SODIUM

REACTIONS (17)
  - Dyspnoea [Recovering/Resolving]
  - Coccidioidomycosis [Unknown]
  - Blood creatinine increased [Recovered/Resolved]
  - Osteoporosis [Unknown]
  - Pneumonia [Recovered/Resolved]
  - Bronchitis [Unknown]
  - Rash generalised [Recovered/Resolved]
  - Prescribed overdose [Unknown]
  - Drug ineffective [Unknown]
  - Asthma [Unknown]
  - Cough [Unknown]
  - Hypothyroidism [Unknown]
  - Hypertension [Unknown]
  - Device use error [Recovered/Resolved]
  - Renal surgery [Recovered/Resolved]
  - Dry eye [Unknown]
  - Tooth extraction [Unknown]

NARRATIVE: CASE EVENT DATE: 2001
